FAERS Safety Report 4993763-8 (Version None)
Quarter: 2006Q2

REPORT INFORMATION
  Report Type: 
  Country: None (occurrence: None)
  Receive Date: 20060505
  Receipt Date: 20051114
  Transmission Date: 20061013
  Serious: Yes (Hospitalization)
  Sender: FDA-Public Use
  Company Number: US-MERCK-0511USA02227

PATIENT
  Age: 66 Year
  Sex: Male
  Weight: 91 kg

DRUGS (15)
  1. VIOXX [Suspect]
     Indication: OSTEOARTHRITIS
     Route: 048
     Dates: start: 20020501, end: 20040930
  2. VIOXX [Suspect]
     Indication: PAIN
     Route: 048
     Dates: start: 20020501, end: 20040930
  3. AMBIEN [Concomitant]
     Indication: INSOMNIA
     Route: 065
  4. FOLIC ACID [Concomitant]
     Indication: CARDIAC DISORDER
     Route: 065
     Dates: start: 20020101
  5. GLUCOTROL [Concomitant]
     Indication: DIABETES MELLITUS
     Route: 065
  6. COUMADIN [Concomitant]
     Indication: CARDIOVASCULAR DISORDER
     Route: 065
     Dates: start: 20020101
  7. PREVACID [Concomitant]
     Indication: GASTRIC DISORDER
     Route: 065
  8. LANOXIN [Concomitant]
     Indication: ATRIAL FIBRILLATION
     Route: 065
     Dates: start: 20020101
  9. LANOXIN [Concomitant]
     Indication: CARDIAC DISORDER
     Route: 065
     Dates: start: 20020101
  10. METOPROLOL [Concomitant]
     Indication: CARDIAC DISORDER
     Route: 065
     Dates: start: 20020101
  11. VIAGRA [Concomitant]
     Indication: ERECTILE DYSFUNCTION
     Route: 065
  12. COZAAR [Concomitant]
     Indication: CARDIAC DISORDER
     Route: 065
     Dates: start: 20020101
  13. GLUCOPHAGE [Concomitant]
     Indication: DIABETES MELLITUS
     Route: 065
  14. FLONASE [Concomitant]
     Indication: HYPERSENSITIVITY
     Route: 065
  15. NAPROXEN [Concomitant]
     Indication: PAIN
     Route: 065

REACTIONS (5)
  - ARTERIOSCLEROSIS CORONARY ARTERY [None]
  - BLOOD CHOLESTEROL INCREASED [None]
  - CEREBROVASCULAR ACCIDENT [None]
  - DIABETES MELLITUS NON-INSULIN-DEPENDENT [None]
  - HYPERTENSION [None]
